FAERS Safety Report 10256798 (Version 1)
Quarter: 2014Q2

REPORT INFORMATION
  Report Type: Spontaneous
  Country: IT (occurrence: IT)
  Receive Date: 20140624
  Receipt Date: 20140624
  Transmission Date: 20141212
  Serious: Yes (Hospitalization)
  Sender: FDA-Public Use
  Company Number: CHPA2014IT008260

PATIENT
  Age: 20 Year
  Sex: Female

DRUGS (3)
  1. IBUPROFEN [Suspect]
     Indication: DRUG ABUSE
     Dosage: 10 DF, UNK
     Route: 048
     Dates: start: 20140205, end: 20140205
  2. CITALOPRAM ABC [Suspect]
     Indication: DRUG ABUSE
     Dosage: 2 DF, UNK
     Route: 048
     Dates: start: 20140205
  3. REVATIO [Suspect]
     Indication: DRUG ABUSE
     Dosage: 9 DF, UNK
     Route: 048
     Dates: start: 20140205, end: 20140205

REACTIONS (3)
  - Agitation [Unknown]
  - Toxicity to various agents [Unknown]
  - Drug abuse [Unknown]
